FAERS Safety Report 24645720 (Version 1)
Quarter: 2024Q4

REPORT INFORMATION
  Report Type: Spontaneous
  Country: GB (occurrence: GB)
  Receive Date: 20241121
  Receipt Date: 20241121
  Transmission Date: 20250114
  Serious: Yes (Hospitalization, Other)
  Sender: AUROBINDO
  Company Number: GB-MHRA-MED-202411081514017020-RHSDY

PATIENT
  Age: 68 Year
  Sex: Male
  Weight: 90 kg

DRUGS (1)
  1. APIXABAN [Suspect]
     Active Substance: APIXABAN
     Indication: Atrial fibrillation
     Dosage: 5 MILLIGRAM, TWO TIMES A DAY
     Route: 065

REACTIONS (1)
  - Autoimmune dermatitis [Recovering/Resolving]
